FAERS Safety Report 8029838 (Version 2)
Quarter: 2013Q2

REPORT INFORMATION
  Report Type: Spontaneous
  Country: US (occurrence: US)
  Receive Date: 20110711
  Receipt Date: 20130429
  Transmission Date: 20140414
  Serious: Yes (Other)
  Sender: FDA-Public Use
  Company Number: US-MYLANLABS-2011S1013568

PATIENT
  Age: 5 Year
  Sex: Male

DRUGS (3)
  1. MERCAPTOPURINE [Suspect]
     Indication: ACUTE LYMPHOCYTIC LEUKAEMIA
     Dosage: 75 MG/M2 PER DOSE PER DAY
     Route: 065
  2. DEXAMETHASONE [Concomitant]
     Indication: ACUTE LYMPHOCYTIC LEUKAEMIA
     Dosage: 3 MG/M2 PER DOSE TWICE A DAY FOR 5 DAYS EVERY 4 WEEKS
     Route: 048
  3. METHOTREXATE [Concomitant]
     Indication: ACUTE LYMPHOCYTIC LEUKAEMIA
     Dosage: 20 MG/M2 PER DOSE PER WEEK; WEEKLY
     Route: 065

REACTIONS (1)
  - Hypoglycaemia [Recovering/Resolving]
